FAERS Safety Report 24264175 (Version 1)
Quarter: 2024Q3

REPORT INFORMATION
  Report Type: Spontaneous
  Country: US (occurrence: US)
  Receive Date: 20240829
  Receipt Date: 20240829
  Transmission Date: 20241017
  Serious: No
  Sender: PFIZER
  Company Number: US-PFIZER INC-202400244184

PATIENT
  Age: 75 Year
  Sex: Male

DRUGS (1)
  1. INLYTA [Interacting]
     Active Substance: AXITINIB
     Dosage: 2 MG, 2X/DAY (1 MG TABLET, 2 TABLETS (2 MG) TWICE DAILY BY MOUTH)
     Route: 048
     Dates: start: 202408, end: 202408

REACTIONS (1)
  - Drug-disease interaction [Unknown]

NARRATIVE: CASE EVENT DATE: 20240801
